FAERS Safety Report 5473974-8 (Version None)
Quarter: 2007Q3

REPORT INFORMATION
  Report Type: 
  Country: None (occurrence: None)
  Receive Date: 20070904
  Receipt Date: 20060929
  Transmission Date: 20080115
  Serious: Yes (Other)
  Sender: FDA-Public Use
  Company Number: 2006119333

PATIENT
  Age: 48 Year
  Sex: Male
  Weight: 72.5755 kg

DRUGS (4)
  1. CAVERJECT [Suspect]
     Indication: ERECTILE DYSFUNCTION
     Dosage: INTRACAVERNOSA
     Route: 017
  2. ATENOLOL [Suspect]
     Indication: HYPERTENSION
     Dosage: 25 MG (25 MG, 1 IN 1 D), ORAL
     Route: 048
     Dates: start: 20060101, end: 20060901
  3. DEPAKOTE [Concomitant]
  4. LIBRAX [Concomitant]

REACTIONS (5)
  - ANXIETY [None]
  - DRUG ADMINISTRATION ERROR [None]
  - DRUG INEFFECTIVE [None]
  - HYPERTENSION [None]
  - TREMOR [None]
